FAERS Safety Report 17218741 (Version 1)
Quarter: 2019Q4

REPORT INFORMATION
  Report Type: Spontaneous
  Country: US (occurrence: US)
  Receive Date: 20191207
  Receipt Date: 20191207
  Transmission Date: 20200122
  Serious: Yes (Hospitalization)
  Sender: FDA-Public Use
  Company Number: None

PATIENT
  Sex: Female

DRUGS (4)
  1. TAXOL [Suspect]
     Active Substance: PACLITAXEL
  2. CYCLOPHOSPHAMIDE. [Suspect]
     Active Substance: CYCLOPHOSPHAMIDE
  3. CARBOPLATIN. [Suspect]
     Active Substance: CARBOPLATIN
  4. DOXORUBICIN HYDROCHLORIDE. [Suspect]
     Active Substance: DOXORUBICIN HYDROCHLORIDE

REACTIONS (4)
  - Cough [None]
  - Dyspnoea [None]
  - Pulmonary embolism [None]
  - Pulmonary congestion [None]

NARRATIVE: CASE EVENT DATE: 20190505
